FAERS Safety Report 7475369-4 (Version None)
Quarter: 2011Q1

REPORT INFORMATION
  Report Type: 
  Country: None (occurrence: None)
  Receive Date: 20110307
  Receipt Date: 20110125
  Transmission Date: 20110831
  Serious: Yes (Other)
  Sender: FDA-Public Use
  Company Number: AUR-APL-2011-00394

PATIENT

DRUGS (4)
  1. LISINOPRIL [Concomitant]
  2. VITAMIN D [Concomitant]
  3. FOSAMAX [Suspect]
     Indication: OSTEOPOROSIS
     Dosage: WEEKLY-ORAL
     Route: 048
     Dates: start: 20030101
  4. ALENDRONATE SODIUM [Suspect]
     Indication: OSTEOPOROSIS
     Dosage: WEEKLY-ORAL
     Route: 048
     Dates: start: 20080101

REACTIONS (2)
  - ABDOMINAL PAIN UPPER [None]
  - BONE DENSITY ABNORMAL [None]
